FAERS Safety Report 5006866-9 (Version None)
Quarter: 2006Q2

REPORT INFORMATION
  Report Type: 
  Country: None (occurrence: None)
  Receive Date: 20060516
  Receipt Date: 20060501
  Transmission Date: 20061013
  Serious: Yes (Hospitalization)
  Sender: FDA-Public Use
  Company Number: US200605000339

PATIENT
  Age: 46 Year
  Sex: Female

DRUGS (3)
  1. ZYPREXA [Suspect]
     Indication: SCHIZOPHRENIA
     Dosage: SEE IMAGE
     Dates: start: 20050101
  2. ZYPREXA [Suspect]
     Indication: SCHIZOPHRENIA
     Dosage: 15 MG, ORAL
     Route: 048
     Dates: start: 20060401
  3. CLONAZEPAM [Concomitant]

REACTIONS (9)
  - ANOREXIA [None]
  - CATATONIA [None]
  - CONDITION AGGRAVATED [None]
  - DELUSION [None]
  - FEAR OF DISEASE [None]
  - FEAR OF WEIGHT GAIN [None]
  - HALLUCINATION, AUDITORY [None]
  - REFUSAL OF TREATMENT BY PATIENT [None]
  - TREATMENT NONCOMPLIANCE [None]
